FAERS Safety Report 17217873 (Version 2)
Quarter: 2020Q1

REPORT INFORMATION
  Report Type: Spontaneous
  Country: BR (occurrence: BR)
  Receive Date: 20191231
  Receipt Date: 20200204
  Transmission Date: 20200409
  Serious: Yes (Life-Threatening, Hospitalization, Other)
  Sender: FDA-Public Use
  Company Number: BR-AUROBINDO-AUR-APL-2019-108320

PATIENT
  Age: 34 Year
  Sex: Male

DRUGS (2)
  1. MEROPENEM. [Suspect]
     Active Substance: MEROPENEM
     Indication: RENAL CYST INFECTION
     Dosage: 1 GRAM, 3 TIMES A DAY
     Route: 065
  2. LINEZOLID. [Suspect]
     Active Substance: LINEZOLID
     Indication: RENAL CYST INFECTION
     Dosage: 600 MILLIGRAM, TWO TIMES A DAY
     Route: 042

REACTIONS (6)
  - Condition aggravated [Recovered/Resolved]
  - Intestinal obstruction [Recovered/Resolved]
  - Kidney enlargement [Recovered/Resolved]
  - Pneumoperitoneum [Recovered/Resolved]
  - Renal cyst infection [Recovered/Resolved]
  - Candida infection [Recovered/Resolved]
